FAERS Safety Report 15990229 (Version 1)
Quarter: 2019Q1

REPORT INFORMATION
  Report Type: Spontaneous
  Country: US (occurrence: US)
  Receive Date: 20190221
  Receipt Date: 20190221
  Transmission Date: 20190418
  Serious: No
  Sender: FDA-Public Use
  Company Number: US-VERTEX PHARMACEUTICALS-2019-001506

PATIENT
  Sex: Female

DRUGS (35)
  1. PULMOZYME [Concomitant]
     Active Substance: DORNASE ALFA
  2. ONDANSETRON [Concomitant]
     Active Substance: ONDANSETRON
  3. CIPROFLOXACIN HYDROCHLORIDE. [Concomitant]
     Active Substance: CIPROFLOXACIN HYDROCHLORIDE
  4. SMZ-TMP [Concomitant]
     Active Substance: SULFAMETHOXAZOLE\TRIMETHOPRIM
  5. DULOXETINE. [Concomitant]
     Active Substance: DULOXETINE
  6. L-METHYLFOLATE [Concomitant]
     Active Substance: LEVOMEFOLIC ACID
  7. IPRATROPIUM/ALBUTEROL [Concomitant]
     Active Substance: ALBUTEROL\IPRATROPIUM
  8. PROAIR HFA [Concomitant]
     Active Substance: ALBUTEROL SULFATE
  9. ALBUTEROL                          /00139501/ [Concomitant]
     Active Substance: ALBUTEROL
  10. ESOMEPRA [Concomitant]
     Active Substance: ESOMEPRAZOLE
  11. PREDNISONE. [Concomitant]
     Active Substance: PREDNISONE
  12. PROMETHAZINE [Concomitant]
     Active Substance: PROMETHAZINE\PROMETHAZINE HYDROCHLORIDE
  13. CHLORHEX [Concomitant]
  14. MUPIROCIN. [Concomitant]
     Active Substance: MUPIROCIN
  15. TRAZODONE [Concomitant]
     Active Substance: TRAZODONE HYDROCHLORIDE
  16. ETHAMBUTOL [Concomitant]
     Active Substance: ETHAMBUTOL HYDROCHLORIDE
  17. APAP/CODEINE                       /00116401/ [Concomitant]
  18. AZELASTINE. [Concomitant]
     Active Substance: AZELASTINE HYDROCHLORIDE
  19. FOLIC ACID. [Concomitant]
     Active Substance: FOLIC ACID
  20. HYDROXYZINE HCL [Concomitant]
     Active Substance: HYDROXYZINE HYDROCHLORIDE
  21. QNASL [Concomitant]
     Active Substance: BECLOMETHASONE DIPROPIONATE
  22. DOXEPIN HYDROCHLORIDE. [Concomitant]
     Active Substance: DOXEPIN HYDROCHLORIDE
  23. MINOCYCLINE [Concomitant]
     Active Substance: MINOCYCLINE\MINOCYCLINE HYDROCHLORIDE
  24. SYMBICORT [Concomitant]
     Active Substance: BUDESONIDE\FORMOTEROL FUMARATE DIHYDRATE
  25. LINEZOLID. [Concomitant]
     Active Substance: LINEZOLID
  26. METOCLOPRAMIDE. [Concomitant]
     Active Substance: METOCLOPRAMIDE
  27. ESCITALOPRAM [Concomitant]
     Active Substance: ESCITALOPRAM OXALATE
  28. CAYSTON [Concomitant]
     Active Substance: AZTREONAM
  29. LAMOTRIGINE. [Concomitant]
     Active Substance: LAMOTRIGINE
  30. QUETIAPINE. [Concomitant]
     Active Substance: QUETIAPINE
  31. ALPRAZOLAM. [Concomitant]
     Active Substance: ALPRAZOLAM
  32. ITRACONAZOLE. [Concomitant]
     Active Substance: ITRACONAZOLE
  33. SYMDEKO [Suspect]
     Active Substance: IVACAFTOR\TEZACAFTOR
     Indication: CYSTIC FIBROSIS
     Dosage: 100 MG TEZACAFTOR/150 MG IVACAFTOR AM; 150 MG IVACAFTOR PM
     Route: 048
     Dates: start: 20180302
  34. BETHKIS [Suspect]
     Active Substance: TOBRAMYCIN
     Indication: CYSTIC FIBROSIS
     Dosage: 1 DOSAGE FORM, QOM
     Route: 055
     Dates: start: 20181106
  35. RANITIDINE. [Concomitant]
     Active Substance: RANITIDINE

REACTIONS (1)
  - Infection [Unknown]

NARRATIVE: CASE EVENT DATE: 2019
